FAERS Safety Report 9617368 (Version 1)
Quarter: 2013Q4

REPORT INFORMATION
  Report Type: Spontaneous
  Country: US (occurrence: US)
  Receive Date: 20131011
  Receipt Date: 20131011
  Transmission Date: 20140711
  Serious: No
  Sender: FDA-Public Use
  Company Number: US-BAYER-2013-121461

PATIENT
  Age: 80 Year
  Sex: Female
  Weight: 57 kg

DRUGS (4)
  1. BAYER GENUINE ASPIRIN ORIGINAL STRENGTH [Suspect]
     Indication: SCIATICA
     Dosage: 3 DF, PRN
     Route: 048
     Dates: start: 201308, end: 201309
  2. ALEVE TABLET [Suspect]
     Indication: PAIN
     Dosage: 1 DF, BID
     Route: 048
     Dates: start: 2010
  3. ATORVASTATIN [Concomitant]
  4. LOSARTAN [Concomitant]

REACTIONS (3)
  - Incorrect drug administration duration [None]
  - Drug effect incomplete [None]
  - Drug ineffective [None]
